FAERS Safety Report 15458907 (Version 1)
Quarter: 2018Q4

REPORT INFORMATION
  Report Type: Spontaneous
  Country: US (occurrence: US)
  Receive Date: 20181003
  Receipt Date: 20181003
  Transmission Date: 20190204
  Serious: No
  Sender: FDA-Public Use
  Company Number: US-ENDO PHARMACEUTICALS INC-2018-039601

PATIENT

DRUGS (1)
  1. VALSTAR [Suspect]
     Active Substance: VALRUBICIN
     Indication: PRODUCT USED FOR UNKNOWN INDICATION
     Dosage: UNK UNKNOWN, UNKNOWN
     Route: 043

REACTIONS (3)
  - Urinary incontinence [Unknown]
  - Underdose [Unknown]
  - Bladder instillation procedure [Unknown]
